FAERS Safety Report 7757723-6 (Version None)
Quarter: 2011Q3

REPORT INFORMATION
  Report Type: 
  Country: None (occurrence: None)
  Receive Date: 20110916
  Receipt Date: 20110916
  Transmission Date: 20111222
  Serious: Yes (Hospitalization)
  Sender: FDA-Public Use
  Company Number: US-RB-032155-11

PATIENT
  Age: 51 Year
  Sex: Female

DRUGS (1)
  1. SUBOXONE [Suspect]
     Indication: PAIN
     Dosage: DOSING DETAILS UNKNOWN
     Route: 065
     Dates: start: 20080101, end: 20080101

REACTIONS (5)
  - COLITIS [None]
  - ABDOMINAL DISCOMFORT [None]
  - OFF LABEL USE [None]
  - GASTRITIS [None]
  - INCORRECT ROUTE OF DRUG ADMINISTRATION [None]
